FAERS Safety Report 8340166-4 (Version None)
Quarter: 2012Q2

REPORT INFORMATION
  Report Type: 
  Country: None (occurrence: None)
  Receive Date: 20120507
  Receipt Date: 20120327
  Transmission Date: 20120825
  Serious: No
  Sender: FDA-Public Use
  Company Number: US-ASTRAZENECA-2012SE20493

PATIENT
  Sex: Female

DRUGS (1)
  1. VIMOVO [Suspect]
     Dosage: 500MG/20MG BID
     Route: 048

REACTIONS (4)
  - INFLAMMATION [None]
  - ARTHRITIS [None]
  - OEDEMA PERIPHERAL [None]
  - OFF LABEL USE [None]
